FAERS Safety Report 5647316-9 (Version None)
Quarter: 2008Q1

REPORT INFORMATION
  Report Type: 
  Country: None (occurrence: None)
  Receive Date: 20080228
  Receipt Date: 20080225
  Transmission Date: 20080703
  Serious: Yes (Death)
  Sender: FDA-Public Use
  Company Number: TCI2008A00838

PATIENT
  Age: 94 Year
  Sex: Male
  Weight: 55 kg

DRUGS (2)
  1. LEUPROLIDE ACETATE [Suspect]
     Indication: PROSTATE CANCER STAGE IV
     Dosage: 11.25 MG (11.25 MG, 1 IN 12 WK) SUBCUTANEOUS
     Route: 058
     Dates: start: 20070615, end: 20070615
  2. CASODEX [Concomitant]

REACTIONS (1)
  - MYOCARDIAL INFARCTION [None]
